FAERS Safety Report 6029267-3 (Version None)
Quarter: 2009Q1

REPORT INFORMATION
  Report Type: 
  Country: None (occurrence: None)
  Receive Date: 20090106
  Receipt Date: 20081219
  Transmission Date: 20090719
  Serious: No
  Sender: FDA-Public Use
  Company Number: US-B.I. PHARMACEUTICALS,INC./RIDGEFIELD-2008-BP-19025BP

PATIENT
  Age: 75 Year
  Sex: Female

DRUGS (3)
  1. SPIRIVA [Suspect]
     Indication: CHRONIC OBSTRUCTIVE PULMONARY DISEASE
     Dosage: 18MCG
     Route: 055
     Dates: start: 20081127, end: 20081219
  2. CALCIUM SUPP [Concomitant]
     Indication: OSTEOPOROSIS
  3. ACTONEL [Concomitant]
     Indication: OSTEOPOROSIS

REACTIONS (4)
  - DRY MOUTH [None]
  - NASAL DRYNESS [None]
  - ORAL PAIN [None]
  - OROPHARYNGEAL PAIN [None]
